FAERS Safety Report 21603871 (Version 1)
Quarter: 2022Q4

REPORT INFORMATION
  Report Type: Spontaneous
  Country: TR (occurrence: TR)
  Receive Date: 20221116
  Receipt Date: 20221116
  Transmission Date: 20230113
  Serious: Yes (Other)
  Sender: FDA-Public Use
  Company Number: TR-OTSUKA-2022_051650

PATIENT
  Age: 41 Year
  Sex: Female
  Weight: 80 kg

DRUGS (1)
  1. ABILIFY MAINTENA [Suspect]
     Active Substance: ARIPIPRAZOLE
     Indication: Product used for unknown indication
     Dosage: 400 MG, QM
     Route: 065
     Dates: start: 20211110

REACTIONS (10)
  - Pharyngitis [Unknown]
  - Suicidal ideation [Unknown]
  - Dysania [Unknown]
  - Adverse drug reaction [Unknown]
  - Movement disorder [Unknown]
  - Swollen tongue [Unknown]
  - Dyspnoea [Unknown]
  - Gait disturbance [Unknown]
  - Depression [Unknown]
  - Asthenia [Unknown]
